FAERS Safety Report 7346847-3 (Version None)
Quarter: 2011Q1

REPORT INFORMATION
  Report Type: 
  Country: None (occurrence: None)
  Receive Date: 20110311
  Receipt Date: 20110303
  Transmission Date: 20110831
  Serious: Yes (Other)
  Sender: FDA-Public Use
  Company Number: JP-JNJFOC-20110107242

PATIENT
  Sex: Male
  Weight: 60 kg

DRUGS (13)
  1. CARDENALIN [Concomitant]
     Route: 048
  2. CLARITIN [Concomitant]
     Indication: ECZEMA
     Route: 048
  3. ITRIZOLE [Suspect]
     Indication: ONYCHOMYCOSIS
     Route: 048
  4. BERAPROST SODIUM [Concomitant]
     Indication: PLEURAL EFFUSION
     Dosage: 3 DF
     Route: 048
  5. CARDENALIN [Concomitant]
     Dosage: 3 DF
     Route: 048
  6. PANALDINE [Concomitant]
     Route: 048
  7. MECOBALAMIN [Concomitant]
     Dosage: 3 DF
     Route: 048
  8. VOLTAREN [Concomitant]
     Dosage: 3 DF
     Route: 048
  9. ISOXSUPRINE HYDROCHLORIDE [Concomitant]
     Dosage: 3 DF
     Route: 048
  10. MARZULENE-S [Concomitant]
     Indication: PROPHYLAXIS
     Dosage: 3 DF
     Route: 048
  11. ASPIRIN [Concomitant]
     Indication: PLEURAL EFFUSION
     Route: 048
  12. WARFARIN POTASSIUM [Concomitant]
     Indication: PLEURAL EFFUSION
     Route: 048
  13. MEXITIL [Concomitant]
     Indication: PLEURAL EFFUSION
     Route: 048

REACTIONS (3)
  - GENERALISED OEDEMA [None]
  - PLEURAL EFFUSION [None]
  - LIVER FUNCTION TEST ABNORMAL [None]
